FAERS Safety Report 7791936-2 (Version None)
Quarter: 2011Q4

REPORT INFORMATION
  Report Type: 
  Country: None (occurrence: None)
  Receive Date: 20111003
  Receipt Date: 20110926
  Transmission Date: 20120403
  Serious: Yes (Disabling)
  Sender: FDA-Public Use
  Company Number: PHHY2011VE86393

PATIENT
  Sex: Female

DRUGS (2)
  1. LERCANIDIPINE [Concomitant]
     Indication: HYPERTENSION
     Dosage: 10 MG
     Route: 048
  2. ZOLEDRONOC ACID [Suspect]
     Indication: OSTEOPOROSIS
     Dosage: 5 MG, YEARLY
     Route: 042
     Dates: start: 20101101

REACTIONS (3)
  - FEMUR FRACTURE [None]
  - FALL [None]
  - INFLUENZA LIKE ILLNESS [None]
